FAERS Safety Report 9390846 (Version 10)
Quarter: 2013Q4

REPORT INFORMATION
  Report Type: Report from Study
  Country: DE (occurrence: DE)
  Receive Date: 20130709
  Receipt Date: 20131213
  Transmission Date: 20140711
  Serious: Yes (Hospitalization, Other)
  Sender: FDA-Public Use
  Company Number: PHHY2013DE055506

PATIENT
  Sex: Female
  Weight: 72 kg

DRUGS (16)
  1. AFINITOR [Suspect]
     Indication: BREAST CANCER METASTATIC
     Dosage: 10 MG, QD
     Route: 048
     Dates: start: 20130418, end: 20130513
  2. AFINITOR [Suspect]
     Dosage: 10 MG, QD
     Route: 048
     Dates: start: 20130530, end: 20130611
  3. AFINITOR [Suspect]
     Dosage: 5 MG, QD
     Route: 048
     Dates: start: 20130612, end: 20130624
  4. EXEMESTANE [Suspect]
     Indication: BREAST CANCER METASTATIC
     Dosage: 25 MG, QD
     Route: 048
     Dates: start: 20130418, end: 20130513
  5. EXEMESTANE [Suspect]
     Dosage: 25 MG, QD
     Route: 048
     Dates: start: 20130529, end: 20131113
  6. BISPHOSPHONATES [Concomitant]
     Indication: BONE DISORDER
  7. RAMIPRIL [Concomitant]
     Dosage: 5 MG, QD
     Dates: start: 20070101
  8. CALCIGEN D [Concomitant]
     Dates: start: 20130502
  9. TORASEMIDE [Concomitant]
     Dates: start: 20130515
  10. OLMETEC [Concomitant]
     Dates: start: 20130112
  11. AMOXYCILLIN [Concomitant]
     Dosage: 1000 MG, BID
     Dates: start: 20130612, end: 20130627
  12. PERENTEROL FORTE [Concomitant]
     Dates: start: 20130612
  13. XELEVIA [Concomitant]
     Dosage: 100 MG, QD
     Dates: end: 20130810
  14. PLASTULEN N [Concomitant]
     Dosage: 55 MG, QD
     Dates: start: 20130612, end: 20130810
  15. DEXAMETHASONE [Concomitant]
     Dosage: 8 MG, QD
     Dates: end: 20131017
  16. APOVIT CALCIUM [Concomitant]

REACTIONS (16)
  - General physical health deterioration [Recovered/Resolved]
  - Decreased appetite [Recovered/Resolved]
  - Fatigue [Recovered/Resolved]
  - Hyperkalaemia [Recovered/Resolved]
  - Interstitial lung disease [Recovered/Resolved]
  - Hyperglycaemia [Recovered/Resolved with Sequelae]
  - C-reactive protein increased [Unknown]
  - Fall [Recovered/Resolved]
  - Haematoma [Recovered/Resolved]
  - Diabetes mellitus [Recovered/Resolved]
  - Pneumonia [Recovered/Resolved]
  - Cough [Recovered/Resolved]
  - Malaise [Recovered/Resolved]
  - Pyrexia [Recovered/Resolved]
  - Pneumonitis [Recovered/Resolved]
  - Hyponatraemia [Recovered/Resolved]
